FAERS Safety Report 7402069-9 (Version None)
Quarter: 2011Q2

REPORT INFORMATION
  Report Type: 
  Country: None (occurrence: None)
  Receive Date: 20110408
  Receipt Date: 20110324
  Transmission Date: 20111010
  Serious: Yes (Other)
  Sender: FDA-Public Use
  Company Number: JP-JNJFOC-20110400130

PATIENT
  Age: 49 Year
  Sex: Male

DRUGS (20)
  1. DOXORUBICIN [Suspect]
     Route: 042
  2. RITUXIMAB [Suspect]
     Route: 065
  3. VINCRISTINE [Suspect]
     Indication: B-CELL LYMPHOMA
     Route: 065
  4. PREDNISOLONE [Suspect]
     Route: 065
  5. DOXORUBICIN [Suspect]
     Route: 042
  6. RITUXIMAB [Suspect]
     Indication: B-CELL LYMPHOMA
     Route: 065
  7. RITUXIMAB [Suspect]
     Route: 065
  8. RITUXIMAB [Suspect]
     Route: 065
  9. CYCLOPHOSPHAMIDE [Suspect]
     Route: 065
  10. VINCRISTINE [Suspect]
     Route: 065
  11. PREDNISOLONE [Suspect]
     Indication: B-CELL LYMPHOMA
     Route: 065
  12. PREDNISOLONE [Suspect]
     Route: 065
  13. DOXORUBICIN [Suspect]
     Indication: B-CELL LYMPHOMA
     Route: 042
  14. VINCRISTINE [Suspect]
     Route: 065
  15. VINCRISTINE [Suspect]
     Route: 065
  16. DOXORUBICIN [Suspect]
     Route: 042
  17. CYCLOPHOSPHAMIDE [Suspect]
     Indication: B-CELL LYMPHOMA
     Route: 065
  18. CYCLOPHOSPHAMIDE [Suspect]
     Route: 065
  19. CYCLOPHOSPHAMIDE [Suspect]
     Route: 065
  20. PREDNISOLONE [Suspect]
     Route: 065

REACTIONS (1)
  - PNEUMOCYSTIS JIROVECI PNEUMONIA [None]
